FAERS Safety Report 6018522-9 (Version None)
Quarter: 2008Q4

REPORT INFORMATION
  Report Type: 
  Country: None (occurrence: None)
  Receive Date: 20081223
  Receipt Date: 20081211
  Transmission Date: 20090506
  Serious: Yes (Hospitalization)
  Sender: FDA-Public Use
  Company Number: PL-PFIZER INC-2008153283

PATIENT

DRUGS (3)
  1. XANAX [Suspect]
     Indication: ANXIETY
     Dosage: 1.5 MG
     Route: 048
     Dates: end: 20081103
  2. ZOLPIDEM [Suspect]
     Indication: INSOMNIA
     Dosage: 10 MG
     Route: 048
     Dates: end: 20081103
  3. ALPRAZOLAM [Suspect]
     Indication: INSOMNIA
     Dosage: 1.5 MG
     Route: 048
     Dates: end: 20081103

REACTIONS (3)
  - BALANCE DISORDER [None]
  - CONFUSIONAL STATE [None]
  - DELIRIUM [None]
